FAERS Safety Report 8336481-0 (Version None)
Quarter: 2012Q2

REPORT INFORMATION
  Report Type: 
  Country: None (occurrence: None)
  Receive Date: 20120504
  Receipt Date: 20120502
  Transmission Date: 20120825
  Serious: Yes (Death, Other)
  Sender: FDA-Public Use
  Company Number: PHHY2012BR037632

PATIENT
  Age: 67 Year
  Sex: Female

DRUGS (6)
  1. FORMOTEROL FUMARATE [Suspect]
     Indication: CHRONIC OBSTRUCTIVE PULMONARY DISEASE
     Dosage: TWO OR THREE INHALATIONS A DAY
  2. BEROTEC [Concomitant]
  3. VENLAFAXINE HCL [Concomitant]
  4. ATROVENT [Concomitant]
  5. SINGULAIR [Concomitant]
  6. SPIRIVA [Concomitant]

REACTIONS (1)
  - CARDIO-RESPIRATORY ARREST [None]
